FAERS Safety Report 8394627-2 (Version None)
Quarter: 2012Q1

REPORT INFORMATION
  Report Type: 
  Country: None (occurrence: None)
  Receive Date: 20120323
  Receipt Date: 20110608
  Transmission Date: 20120608
  Serious: Yes (Other)
  Sender: FDA-Public Use
  Company Number: 163-21880-11050474

PATIENT
  Age: 79 Year
  Sex: Female

DRUGS (12)
  1. PRILOSEC [Concomitant]
  2. ASPIRIN [Concomitant]
  3. NEURONTIN [Concomitant]
  4. FLONASE [Concomitant]
  5. HYDROCHLOROTHIAZIDE [Concomitant]
  6. REVLIMID [Suspect]
     Indication: MYELODYSPLASTIC SYNDROME
     Dosage: 25 MG, 1 IN 1 D, PO
     Route: 048
     Dates: start: 20110420
  7. HYDROCHLOROTHIAZIDE [Concomitant]
  8. NORVASC [Concomitant]
  9. REGLAN [Concomitant]
  10. AMTRIPTYLINE (AMITRITYLINE) [Concomitant]
  11. REQUIP [Concomitant]
  12. LASIX [Concomitant]

REACTIONS (2)
  - FULL BLOOD COUNT DECREASED [None]
  - VOMITING [None]
